FAERS Safety Report 8032842-8 (Version None)
Quarter: 2011Q4

REPORT INFORMATION
  Report Type: 
  Country: None (occurrence: None)
  Receive Date: 20111228
  Receipt Date: 20111214
  Transmission Date: 20120403
  Serious: Yes (Hospitalization, Other)
  Sender: FDA-Public Use
  Company Number: 2011SP058673

PATIENT
  Sex: Female

DRUGS (3)
  1. VICTRELIS [Suspect]
     Indication: HEPATITIS C
     Dates: start: 20111120
  2. PEG-INTRON [Suspect]
     Indication: HEPATITIS C
     Dates: start: 20111016
  3. RIBAVIRIN [Suspect]
     Indication: HEPATITIS C
     Dates: start: 20111016

REACTIONS (11)
  - HALLUCINATION [None]
  - MEMORY IMPAIRMENT [None]
  - VAGINAL HAEMORRHAGE [None]
  - DYSPNOEA [None]
  - SEXUALLY TRANSMITTED DISEASE [None]
  - MENTAL IMPAIRMENT [None]
  - PANCREATIC DISORDER [None]
  - FALL [None]
  - GAIT DISTURBANCE [None]
  - MUSCULAR WEAKNESS [None]
  - SPEECH DISORDER [None]
